FAERS Safety Report 9340479 (Version 1)
Quarter: 2013Q2

REPORT INFORMATION
  Report Type: Spontaneous
  Country: US (occurrence: US)
  Receive Date: 20130610
  Receipt Date: 20130610
  Transmission Date: 20140414
  Serious: Yes (Hospitalization)
  Sender: FDA-Public Use
  Company Number: US-BAYER-2013-067622

PATIENT
  Age: 83 Year
  Sex: Male
  Weight: 91 kg

DRUGS (10)
  1. BAYER GENUINE ASPIRIN ORIGINAL STRENGTH [Suspect]
     Dosage: 1 DF, QD
     Route: 048
     Dates: start: 201212
  2. BAYER ASPIRIN REGIMEN ADULT LOW STRENGTH [Interacting]
     Indication: ISCHAEMIC HEART DISEASE PROPHYLAXIS
     Dosage: 1 DF, QD
     Route: 048
     Dates: end: 201212
  3. PLAVIX [Interacting]
  4. VITAMIN B12 [Concomitant]
  5. CALCIUM CITRATE [Concomitant]
  6. VITAMIN B3 [Concomitant]
  7. LECITHIN [Concomitant]
  8. HAWTHORN [Concomitant]
  9. COQ10 [Concomitant]
  10. ESTER C [Concomitant]

REACTIONS (3)
  - Gastric ulcer haemorrhage [None]
  - Incorrect dose administered [None]
  - Labelled drug-drug interaction medication error [None]
